FAERS Safety Report 6910820-7 (Version None)
Quarter: 2010Q3

REPORT INFORMATION
  Report Type: 
  Country: None (occurrence: None)
  Receive Date: 20100716
  Receipt Date: 20100126
  Transmission Date: 20110219
  Serious: Yes (Other)
  Sender: FDA-Public Use
  Company Number: 2009312619

PATIENT
  Age: 84 Year
  Sex: Male
  Weight: 81.6 kg

DRUGS (2)
  1. CELEBREX [Suspect]
     Indication: JOINT SWELLING
     Dosage: 200 MG, 1X/DAY, ORAL
     Route: 048
     Dates: start: 20091209
  2. MESALAMINE [Concomitant]

REACTIONS (5)
  - BURNING SENSATION [None]
  - ERYTHEMA [None]
  - HYPERSENSITIVITY [None]
  - RASH [None]
  - SKIN IRRITATION [None]
